FAERS Safety Report 12913251 (Version 7)
Quarter: 2020Q2

REPORT INFORMATION
  Report Type: Spontaneous
  Country: US (occurrence: US)
  Receive Date: 20161104
  Receipt Date: 20200424
  Transmission Date: 20200713
  Serious: Yes (Life-Threatening, Hospitalization, Other)
  Sender: FDA-Public Use
  Company Number: US-ACTELION-A-NJ2016-144705

PATIENT
  Age: 56 Year
  Sex: Male

DRUGS (14)
  1. OPSUMIT [Suspect]
     Active Substance: MACITENTAN
     Indication: PORTOPULMONARY HYPERTENSION
  2. SPIRONOLACTONE. [Concomitant]
     Active Substance: SPIRONOLACTONE
     Dosage: 25 MG, BID
  3. TORSEMIDE. [Concomitant]
     Active Substance: TORSEMIDE
     Dosage: 20 MG, TID
  4. SIMVASTATIN. [Concomitant]
     Active Substance: SIMVASTATIN
     Dosage: 40 MG, QPM
     Route: 048
     Dates: start: 20110621
  5. VELETRI [Suspect]
     Active Substance: EPOPROSTENOL
     Indication: PORTOPULMONARY HYPERTENSION
     Dosage: 6.5 NG/KG, PER MIN
     Route: 042
     Dates: start: 20160916, end: 20161103
  6. SILDENAFIL. [Concomitant]
     Active Substance: SILDENAFIL
     Dosage: 20 MG, TID
     Route: 048
     Dates: start: 20080407
  7. GABAPENTIN. [Concomitant]
     Active Substance: GABAPENTIN
     Dosage: 100 MG, TID
     Route: 048
     Dates: start: 20160920
  8. SPIRONOLACTONE. [Concomitant]
     Active Substance: SPIRONOLACTONE
     Dosage: 50 MG, QD
     Route: 048
     Dates: start: 20091007
  9. WARFARIN [Concomitant]
     Active Substance: WARFARIN
  10. GABAPENTIN. [Concomitant]
     Active Substance: GABAPENTIN
     Dosage: UNK
  11. GLIPIZIDE. [Concomitant]
     Active Substance: GLIPIZIDE
     Dosage: 5 MG, BID
     Route: 048
     Dates: start: 20131203
  12. OMEPRAZOLE. [Concomitant]
     Active Substance: OMEPRAZOLE
     Dosage: 20 MG, BID
     Dates: start: 20080207
  13. OPSUMIT [Suspect]
     Active Substance: MACITENTAN
     Indication: PULMONARY ARTERIAL HYPERTENSION
     Dosage: 10 MG, QD
     Route: 048
     Dates: start: 20160325
  14. TORSEMIDE. [Concomitant]
     Active Substance: TORSEMIDE
     Dosage: 60 MG, QD
     Route: 048
     Dates: start: 20161017

REACTIONS (20)
  - Blood lactic acid increased [Recovered/Resolved]
  - Ascites [Unknown]
  - Haemoglobin decreased [Unknown]
  - Liver disorder [Unknown]
  - Blood magnesium decreased [Recovered/Resolved]
  - Hepatic encephalopathy [Recovered/Resolved]
  - Asthenia [Unknown]
  - Infection [Unknown]
  - Platelet count decreased [Unknown]
  - Platelet transfusion [Unknown]
  - Blood bilirubin increased [Unknown]
  - Hypokalaemia [Recovered/Resolved]
  - Body temperature increased [Unknown]
  - Somnolence [Unknown]
  - Thrombocytopenia [Unknown]
  - Gallbladder enlargement [Unknown]
  - Subdural haematoma [Unknown]
  - Slow speech [Recovered/Resolved]
  - Muscular weakness [Unknown]
  - Troponin increased [Unknown]

NARRATIVE: CASE EVENT DATE: 20160801
